FAERS Safety Report 14260340 (Version 3)
Quarter: 2019Q1

REPORT INFORMATION
  Report Type: Spontaneous
  Country: US (occurrence: US)
  Receive Date: 20171207
  Receipt Date: 20190327
  Transmission Date: 20190417
  Serious: Yes (Hospitalization, Other)
  Sender: FDA-Public Use
  Company Number: US-009507513-1712USA003917

PATIENT
  Sex: Male
  Weight: 77.1 kg

DRUGS (1)
  1. JANUMET [Suspect]
     Active Substance: METFORMIN HYDROCHLORIDE\SITAGLIPTIN PHOSPHATE
     Indication: TYPE 2 DIABETES MELLITUS
     Dosage: 50MG/500MG ONCE DAILY
     Route: 048
     Dates: start: 20091015, end: 20110811

REACTIONS (27)
  - Nausea [Unknown]
  - Retinopathy [Unknown]
  - Drug hypersensitivity [Unknown]
  - Angiopathy [Unknown]
  - Intestinal ischaemia [Unknown]
  - Hypophosphataemia [Unknown]
  - Supraventricular tachycardia [Unknown]
  - Atrial fibrillation [Unknown]
  - Abnormal loss of weight [Unknown]
  - Pancreatitis chronic [Unknown]
  - Agitation [Unknown]
  - Confusional state [Unknown]
  - Rash [Unknown]
  - Cerebrovascular accident [Unknown]
  - Eye operation [Unknown]
  - Splenectomy [Unknown]
  - Coronary angioplasty [Unknown]
  - Delirium [Unknown]
  - Central venous catheterisation [Unknown]
  - Tachycardia [Unknown]
  - Blindness [Unknown]
  - Carotid artery stenosis [Unknown]
  - Hyperglycaemia [Unknown]
  - Pruritus [Unknown]
  - Adenocarcinoma pancreas [Unknown]
  - Pulmonary mass [Unknown]
  - Hypokalaemia [Unknown]

NARRATIVE: CASE EVENT DATE: 201201
